FAERS Safety Report 6611062-5 (Version None)
Quarter: 2010Q1

REPORT INFORMATION
  Report Type: 
  Country: None (occurrence: None)
  Receive Date: 20100303
  Receipt Date: 20100301
  Transmission Date: 20100710
  Serious: Yes (Hospitalization)
  Sender: FDA-Public Use
  Company Number: US-ASTRAZENECA-2005UW13323

PATIENT
  Sex: Female
  Weight: 130.6 kg

DRUGS (11)
  1. SEROQUEL [Suspect]
     Indication: DEPRESSION
     Dosage: 25-100 MG
     Route: 048
     Dates: start: 20061001, end: 20070301
  2. SEROQUEL [Suspect]
     Route: 048
     Dates: start: 20061009
  3. VYTORIN [Concomitant]
     Dosage: 10-40 MG
     Dates: start: 20060814
  4. ASPIRIN [Concomitant]
     Dosage: 81 MG EC
     Dates: start: 20060906
  5. HYDROCHLOROTHIAZIDE [Concomitant]
     Dates: start: 20060906
  6. AVANDIA [Concomitant]
     Dates: start: 20060906
  7. NIFEDIAC CC [Concomitant]
     Dates: start: 20060906
  8. LISINOPRIL [Concomitant]
     Dates: start: 20060906
  9. METFORMIN HCL [Concomitant]
     Dates: start: 20060906
  10. GLYBURIDE [Concomitant]
     Dates: start: 20060906
  11. CYMBALTA [Concomitant]

REACTIONS (8)
  - ABDOMINAL PAIN [None]
  - ANAEMIA [None]
  - BLOOD TRIGLYCERIDES INCREASED [None]
  - HYPERLIPIDAEMIA [None]
  - HYPERTENSION [None]
  - OBESITY [None]
  - PAIN [None]
  - TYPE 2 DIABETES MELLITUS [None]
